FAERS Safety Report 19418806 (Version 1)
Quarter: 2021Q2

REPORT INFORMATION
  Report Type: Spontaneous
  Country: CH (occurrence: CH)
  Receive Date: 20210615
  Receipt Date: 20210615
  Transmission Date: 20210717
  Serious: Yes (Hospitalization, Other)
  Sender: FDA-Public Use
  Company Number: CH-MYLANLABS-2021M1033753

PATIENT
  Age: 98 Year
  Sex: Female

DRUGS (24)
  1. TOREM [Suspect]
     Active Substance: TORSEMIDE
     Indication: PRODUCT USED FOR UNKNOWN INDICATION
     Dosage: 10 MILLIGRAM, QD
     Route: 048
     Dates: start: 20210118, end: 20210219
  2. REMERON [Concomitant]
     Active Substance: MIRTAZAPINE
     Dosage: 7.5 MILLIGRAM, QD
     Route: 048
     Dates: start: 20210510, end: 20210511
  3. BIOFLORIN                          /01639001/ [Concomitant]
     Dosage: 1 DOSAGE FORM, TID
  4. PROTAGENT SE [Concomitant]
     Dosage: 1 GTT DROPS, QID
     Route: 031
  5. CYMBALTA [Concomitant]
     Active Substance: DULOXETINE HYDROCHLORIDE
     Dosage: 30 MILLIGRAM, QD
     Route: 048
     Dates: start: 202009, end: 20210110
  6. REMERON [Concomitant]
     Active Substance: MIRTAZAPINE
     Dosage: 7.5 MILLIGRAM, QD
     Route: 048
     Dates: start: 20210211, end: 20210219
  7. CONCOR [Concomitant]
     Active Substance: BISOPROLOL FUMARATE
     Dosage: 10 MILLIGRAM, QD
     Route: 048
  8. ENALAPRIL [Concomitant]
     Active Substance: ENALAPRIL
     Dosage: 10 MILLIGRAM, QD
  9. MOXIFLOXACINE [Suspect]
     Active Substance: MOXIFLOXACIN
     Indication: PRODUCT USED FOR UNKNOWN INDICATION
     Dosage: 400 MILLIGRAM, QD
     Dates: start: 20210111, end: 20210118
  10. CYMBALTA [Concomitant]
     Active Substance: DULOXETINE HYDROCHLORIDE
     Dosage: 15 MILLIGRAM, QD
     Route: 048
     Dates: start: 20210219, end: 20210509
  11. CONCOR [Concomitant]
     Active Substance: BISOPROLOL FUMARATE
     Dosage: 10 MILLIGRAM, QD
     Route: 048
     Dates: start: 20210220
  12. TOREM [Suspect]
     Active Substance: TORSEMIDE
     Dosage: 10 MILLIGRAM, QD
     Route: 048
     Dates: start: 20210506
  13. CLEXANE [Suspect]
     Active Substance: ENOXAPARIN SODIUM
     Indication: PRODUCT USED FOR UNKNOWN INDICATION
     Dosage: 40 MILLIGRAM, QD
     Route: 058
     Dates: start: 20210110, end: 20210219
  14. CLEXANE [Suspect]
     Active Substance: ENOXAPARIN SODIUM
     Dosage: 40 MILLIGRAM, QD
     Route: 058
     Dates: start: 20210507
  15. ANXIOLIT [Concomitant]
     Active Substance: OXAZEPAM
     Dosage: 7.5 MILLIGRAM, QD
     Route: 048
     Dates: start: 20210510, end: 20210510
  16. VESICARE [Concomitant]
     Active Substance: SOLIFENACIN SUCCINATE
     Dosage: 5 MILLIGRAM, QD
     Route: 048
     Dates: end: 20210512
  17. LAXOBERON [Concomitant]
     Active Substance: SODIUM PICOSULFATE
     Dosage: 10 MILLIGRAM, QD
     Route: 048
     Dates: start: 20210115, end: 20210219
  18. NITRODERM [Concomitant]
     Active Substance: NITROGLYCERIN
     Dosage: 10 MILLIGRAM, QD
  19. AMLODIPIN                          /00972403/ [Concomitant]
     Dosage: 10 MILLIGRAM, QD
     Route: 048
     Dates: end: 20210513
  20. LEXOTANIL [Concomitant]
     Active Substance: BROMAZEPAM
     Dosage: 1.5 MILLIGRAM, PRN (AS NECESSARY)
  21. LEXOTANIL [Concomitant]
     Active Substance: BROMAZEPAM
     Dosage: 1.5 MILLIGRAM, QD
     Route: 048
     Dates: start: 20210110, end: 20210113
  22. ASPIRINE [Concomitant]
     Active Substance: ASPIRIN
     Dosage: 100 MILLIGRAM, QD
     Route: 048
     Dates: end: 20210510
  23. ANXIOLIT [Concomitant]
     Active Substance: OXAZEPAM
     Dosage: 7.5 MILLIGRAM, QD
     Route: 048
     Dates: start: 20210512, end: 20210512
  24. CIRCADIN [Concomitant]
     Active Substance: MELATONIN
     Dosage: 2 MILLIGRAM, QD
     Dates: start: 20210514

REACTIONS (7)
  - Dehydration [Unknown]
  - Pruritus [Unknown]
  - Fall [Unknown]
  - Infection parasitic [Unknown]
  - Pemphigoid [Unknown]
  - Eczema [Unknown]
  - Eosinophilia [Unknown]

NARRATIVE: CASE EVENT DATE: 202101
